FAERS Safety Report 4918257-7 (Version None)
Quarter: 2006Q1

REPORT INFORMATION
  Report Type: 
  Country: None (occurrence: None)
  Receive Date: 20060222
  Receipt Date: 20060203
  Transmission Date: 20060701
  Serious: Yes (Other)
  Sender: FDA-Public Use
  Company Number: GB-RB-2738-2006

PATIENT
  Age: 32 Year
  Sex: Male

DRUGS (1)
  1. BUPRENORPHINE HCL [Suspect]
     Indication: DRUG USE FOR UNKNOWN INDICATION
     Route: 048
     Dates: start: 20060101, end: 20060101

REACTIONS (3)
  - DEPRESSED MOOD [None]
  - SELF-INJURIOUS IDEATION [None]
  - SUICIDAL IDEATION [None]
